FAERS Safety Report 18951311 (Version 1)
Quarter: 2021Q1

REPORT INFORMATION
  Report Type: Other
  Country: IT (occurrence: IT)
  Receive Date: 20210228
  Receipt Date: 20210228
  Transmission Date: 20210420
  Serious: Yes (Other)
  Sender: FDA-Public Use
  Company Number: IT-ROCHE-2770868

PATIENT
  Age: 53 Year
  Sex: Female
  Weight: 70 kg

DRUGS (16)
  1. PALBOCICLIB [Suspect]
     Active Substance: PALBOCICLIB
     Indication: BREAST CANCER
     Route: 048
     Dates: start: 20191104
  2. LAPATINIB [Suspect]
     Active Substance: LAPATINIB
     Indication: BREAST CANCER
     Route: 048
     Dates: start: 20181016, end: 20190410
  3. LASIX [Concomitant]
     Active Substance: FUROSEMIDE
     Dosage: ONGOING = CHECKED
     Dates: start: 20200527
  4. LOSARTAN. [Concomitant]
     Active Substance: LOSARTAN
     Dosage: ONGOING = CHECKED
  5. TRASTUZUMAB. [Suspect]
     Active Substance: TRASTUZUMAB
     Indication: BREAST CANCER
     Dosage: ON 03/MAY/2019: MOST RECENT DOSE OF TRASTUZUMAB PRIOR TO THE EVENT
     Route: 042
     Dates: start: 20170130, end: 20170130
  6. VINORELBINE [Suspect]
     Active Substance: VINORELBINE TARTRATE
     Indication: BREAST CANCER
     Route: 042
     Dates: start: 20190503, end: 20190730
  7. CAPECITABINE. [Suspect]
     Active Substance: CAPECITABINE
     Indication: BREAST CANCER
     Route: 048
     Dates: start: 20181016, end: 20190410
  8. DOCETAXEL. [Suspect]
     Active Substance: DOCETAXEL
     Indication: BREAST CANCER
     Route: 042
     Dates: start: 20170130, end: 20170719
  9. EUTIROX [Concomitant]
     Active Substance: LEVOTHYROXINE SODIUM
     Dates: start: 20161219
  10. CITALOPRAM [Concomitant]
     Active Substance: CITALOPRAM HYDROBROMIDE
     Dosage: ONGOING = CHECKED
  11. ERIBULIN MESYLATE [Suspect]
     Active Substance: ERIBULIN MESYLATE
     Indication: BREAST CANCER
     Route: 042
     Dates: start: 20190903, end: 20191023
  12. LUVION (ITALY) [Concomitant]
     Dosage: ONGOING = CHECKED
     Dates: start: 20200622
  13. FULVESTRANT. [Suspect]
     Active Substance: FULVESTRANT
     Indication: BREAST CANCER
     Route: 042
     Dates: start: 20191104, end: 20201221
  14. TRASTUZUMAB EMTANSINE [Suspect]
     Active Substance: ADO-TRASTUZUMAB EMTANSINE
     Indication: BREAST CANCER
     Route: 042
     Dates: start: 20180613, end: 20181001
  15. ZOLEDRONIC ACID [Concomitant]
     Active Substance: ZOLEDRONIC ACID
     Dosage: ONGOING = CHECKED
     Dates: start: 20191106
  16. PERTUZUMAB. [Suspect]
     Active Substance: PERTUZUMAB
     Indication: BREAST CANCER
     Dosage: ON 20/FEB/2017: MOST RECENT DOSE OF PERTUZUMAB PRIOR TO THE EVENT
     Route: 042
     Dates: start: 20170130, end: 20170130

REACTIONS (2)
  - Oedema [Recovered/Resolved]
  - Urinary retention [Recovered/Resolved]

NARRATIVE: CASE EVENT DATE: 20200527
